FAERS Safety Report 5892404-5 (Version None)
Quarter: 2008Q3

REPORT INFORMATION
  Report Type: 
  Country: None (occurrence: None)
  Receive Date: 20080919
  Receipt Date: 20080919
  Transmission Date: 20090109
  Serious: No
  Sender: FDA-Public Use
  Company Number: None

PATIENT
  Age: 58 Year
  Sex: Male

DRUGS (1)
  1. GADOBENATE DIMEGLUMINE BRACCO DIAGNOSTICS [Suspect]
     Indication: NUCLEAR MAGNETIC RESONANCE IMAGING BRAIN
     Dosage: 18 MG IV
     Route: 042
     Dates: start: 20080918, end: 20080918

REACTIONS (2)
  - NAUSEA [None]
  - VOMITING [None]
